FAERS Safety Report 8447717 (Version 2)
Quarter: 2013Q4

REPORT INFORMATION
  Report Type: Report from Study
  Country: IT (occurrence: IT)
  Receive Date: 20120308
  Receipt Date: 20131223
  Transmission Date: 20140711
  Serious: Yes (Death, Hospitalization)
  Sender: FDA-Public Use
  Company Number: PHHO2012IT000757

PATIENT
  Sex: 0

DRUGS (4)
  1. LDK378 [Suspect]
     Indication: NON-SMALL CELL LUNG CANCER
     Dosage: 750 MG, UNK
     Route: 048
     Dates: start: 20111219, end: 20120102
  2. DEXAMETHASONE [Suspect]
     Indication: METASTASES TO CENTRAL NERVOUS SYSTEM
     Dosage: 64 MG, QD
     Route: 048
     Dates: start: 201107, end: 20111229
  3. DEXAMETHASONE [Suspect]
     Dosage: 8 MG, QD
     Route: 048
     Dates: start: 20111230, end: 20120103
  4. METFORMIN [Concomitant]
     Indication: DIABETES MELLITUS
     Dosage: 200 MG, QD
     Route: 048
     Dates: start: 20111230, end: 20120102

REACTIONS (5)
  - Sepsis [Fatal]
  - Somnolence [Not Recovered/Not Resolved]
  - Hyperglycaemia [Not Recovered/Not Resolved]
  - Platelet count decreased [Not Recovered/Not Resolved]
  - Anaemia [Recovering/Resolving]
